FAERS Safety Report 5823688-7 (Version None)
Quarter: 2008Q3

REPORT INFORMATION
  Report Type: 
  Country: None (occurrence: None)
  Receive Date: 20080725
  Receipt Date: 20080714
  Transmission Date: 20090109
  Serious: Yes (Other)
  Sender: FDA-Public Use
  Company Number: CN-PFIZER INC-2008059019

PATIENT
  Age: 64 Year

DRUGS (1)
  1. SULPERAZON [Suspect]
     Indication: INFECTION
     Route: 042
     Dates: start: 20070101, end: 20070101

REACTIONS (2)
  - RED BLOOD CELL COUNT DECREASED [None]
  - WHITE BLOOD CELL COUNT DECREASED [None]
